FAERS Safety Report 23912496 (Version 2)
Quarter: 2025Q1

REPORT INFORMATION
  Report Type: Report from Study
  Country: AT (occurrence: AT)
  Receive Date: 20240528
  Receipt Date: 20250131
  Transmission Date: 20250408
  Serious: Yes (Hospitalization, Other)
  Sender: TAKEDA
  Company Number: AT-TAKEDA-2021TUS054302

PATIENT
  Age: 6 Year
  Sex: Male

DRUGS (4)
  1. TEDUGLUTIDE [Suspect]
     Active Substance: TEDUGLUTIDE
     Indication: Short-bowel syndrome
     Dosage: 0.22 MILLILITER, QD
  2. TEDUGLUTIDE [Suspect]
     Active Substance: TEDUGLUTIDE
     Dosage: 0.22 MILLILITER, QD
  3. TEDUGLUTIDE [Suspect]
     Active Substance: TEDUGLUTIDE
     Dosage: 0.3 MILLILITER, QD
  4. TEDUGLUTIDE [Suspect]
     Active Substance: TEDUGLUTIDE
     Dosage: 0.34 MILLILITER, QD
     Dates: start: 20200610

REACTIONS (5)
  - Pneumonia influenzal [Recovering/Resolving]
  - Blood potassium decreased [Recovering/Resolving]
  - Abdominal distension [Recovering/Resolving]
  - Liver function test increased [Unknown]
  - Flatulence [Recovered/Resolved]

NARRATIVE: CASE EVENT DATE: 20210825
